FAERS Safety Report 22054162 (Version 1)
Quarter: 2023Q1

REPORT INFORMATION
  Report Type: Spontaneous
  Country: US (occurrence: US)
  Receive Date: 20230302
  Receipt Date: 20230302
  Transmission Date: 20230417
  Serious: No
  Sender: FDA-Public Use
  Company Number: US-NOVOPROD-888661

PATIENT
  Sex: Female

DRUGS (3)
  1. SAXENDA [Suspect]
     Active Substance: LIRAGLUTIDE
     Dosage: UNK
     Route: 058
     Dates: start: 202201, end: 202201
  2. SAXENDA [Suspect]
     Active Substance: LIRAGLUTIDE
     Indication: Product used for unknown indication
     Dosage: UNK
     Route: 058
     Dates: start: 20220114, end: 202201
  3. SAXENDA [Suspect]
     Active Substance: LIRAGLUTIDE
     Dosage: 2ND INCREASED DOSAGE
     Route: 058
     Dates: start: 202201

REACTIONS (4)
  - Weight increased [Unknown]
  - Gastric dilatation [Unknown]
  - Constipation [Unknown]
  - Drug ineffective [Unknown]

NARRATIVE: CASE EVENT DATE: 20220101
